FAERS Safety Report 18387844 (Version 3)
Quarter: 2020Q4

REPORT INFORMATION
  Report Type: Report from Study
  Country: US (occurrence: US)
  Receive Date: 20201015
  Receipt Date: 20201229
  Transmission Date: 20210114
  Serious: Yes (Other)
  Sender: FDA-Public Use
  Company Number: NVSC2020US274513

PATIENT
  Sex: Male

DRUGS (1)
  1. TABRECTA [Suspect]
     Active Substance: CAPMATINIB
     Indication: PRODUCT USED FOR UNKNOWN INDICATION
     Dosage: UNK
     Route: 048

REACTIONS (6)
  - Hypersensitivity [Unknown]
  - Lung neoplasm malignant [Unknown]
  - Dyspnoea [Unknown]
  - Abdominal discomfort [Unknown]
  - Fatigue [Unknown]
  - Dyspepsia [Unknown]
